FAERS Safety Report 10765979 (Version 1)
Quarter: 2015Q1

REPORT INFORMATION
  Report Type: Spontaneous
  Country: US (occurrence: US)
  Receive Date: 20150205
  Receipt Date: 20150205
  Transmission Date: 20150721
  Serious: No
  Sender: FDA-Public Use
  Company Number: US-BAYER-2015-016755

PATIENT
  Age: 31 Year
  Sex: Female

DRUGS (1)
  1. MIRENA [Suspect]
     Active Substance: LEVONORGESTREL
     Indication: CONTRACEPTION
     Dosage: 20 MCG/24HR, CONT
     Route: 015
     Dates: start: 20140910

REACTIONS (4)
  - Vaginal haemorrhage [Recovered/Resolved]
  - Menstruation delayed [Recovered/Resolved]
  - Coital bleeding [None]
  - Menorrhagia [Recovered/Resolved]

NARRATIVE: CASE EVENT DATE: 2014
